FAERS Safety Report 6156111-6 (Version None)
Quarter: 2009Q2

REPORT INFORMATION
  Report Type: 
  Country: None (occurrence: None)
  Receive Date: 20090415
  Receipt Date: 20090407
  Transmission Date: 20091009
  Serious: Yes (Hospitalization)
  Sender: FDA-Public Use
  Company Number: FR-ASTRAZENECA-2009CG00655

PATIENT
  Age: 31491 Day
  Sex: Female

DRUGS (3)
  1. ATACAND [Suspect]
     Indication: HYPERTENSION
     Route: 048
     Dates: start: 20090212, end: 20090217
  2. TENORMIN [Suspect]
     Indication: HYPERTENSION
     Route: 048
     Dates: end: 20090206
  3. CANDESARTAN CILEXETIL [Suspect]
     Indication: HYPERTENSION
     Route: 048
     Dates: end: 20090212

REACTIONS (4)
  - BRADYCARDIA [None]
  - COGNITIVE DISORDER [None]
  - HYPONATRAEMIA [None]
  - PSYCHOMOTOR SKILLS IMPAIRED [None]
